FAERS Safety Report 8916882 (Version 1)
Quarter: 2012Q4

REPORT INFORMATION
  Report Type: 
  Country: US (occurrence: US)
  Receive Date: 20121120
  Receipt Date: 20121120
  Transmission Date: 20130627
  Serious: No
  Sender: FDA-Public Use
  Company Number: US-PFIZER INC-2012287974

PATIENT
  Age: 66 Year
  Sex: Female
  Weight: 54.88 kg

DRUGS (10)
  1. PROTONIX [Suspect]
     Indication: STOMACH ACHE
     Dosage: UNK, daily
     Dates: end: 201210
  2. METOPROLOL TARTRATE [Concomitant]
     Indication: ARRHYTHMIA
     Dosage: 50 mg, 2x/day
  3. LORAZEPAM [Concomitant]
     Indication: PHOBIA
     Dosage: UNK, as needed
  4. LORAZEPAM [Concomitant]
     Indication: NERVOUSNESS
  5. CALCIUM [Concomitant]
     Dosage: UNK
  6. LISINOPRIL [Concomitant]
     Indication: BLOOD PRESSURE HIGH
     Dosage: 20 mg, daily
  7. PRAVASTATIN [Concomitant]
     Indication: BLOOD CHOLESTEROL ABNORMAL
     Dosage: 80 mg, daily
  8. METFORMIN [Concomitant]
     Indication: DIABETES
     Dosage: 500 mg, 2x/day
     Dates: start: 2012
  9. WARFARIN [Concomitant]
     Indication: ATRIAL FIBRILLATION
     Dosage: half of 5 mg pill daily
  10. FLECAINIDE [Concomitant]
     Indication: ARRHYTHMIA
     Dosage: 100 mg, 2x/day

REACTIONS (2)
  - Weight decreased [Unknown]
  - Nausea [Unknown]
